FAERS Safety Report 16087784 (Version 1)
Quarter: 2019Q1

REPORT INFORMATION
  Report Type: Spontaneous
  Country: FR (occurrence: FR)
  Receive Date: 20190319
  Receipt Date: 20190319
  Transmission Date: 20190418
  Serious: Yes (Hospitalization)
  Sender: FDA-Public Use
  Company Number: FR-ACCORD-113361

PATIENT
  Age: 69 Year
  Sex: Female
  Weight: 54 kg

DRUGS (6)
  1. FLUOROURACIL ACCORD [Suspect]
     Active Substance: FLUOROURACIL
     Indication: ADENOCARCINOMA PANCREAS
     Dosage: STRENGTH : 50 MG / ML, 304 MG BOLUS + 3645 MG DIFFUSER
     Route: 042
     Dates: start: 20181023, end: 20181023
  2. TRAMADOL. [Concomitant]
     Active Substance: TRAMADOL
  3. IRINOTECAN MEDAC [Suspect]
     Active Substance: IRINOTECAN
     Indication: ADENOCARCINOMA PANCREAS
     Dosage: STRENGTH : 20 MG / ML
     Route: 042
     Dates: start: 20181023, end: 20181023
  4. MOVICOL [Concomitant]
     Active Substance: POLYETHYLENE GLYCOL 3350\POTASSIUM CHLORIDE\SODIUM BICARBONATE\SODIUM CHLORIDE
     Dosage: POWDER FOR ORAL SOLUTION IN SACHET
  5. LOVENOX [Concomitant]
     Active Substance: ENOXAPARIN SODIUM
  6. OXALIPLATIN ACCORD [Suspect]
     Active Substance: OXALIPLATIN
     Indication: ADENOCARCINOMA PANCREAS
     Dosage: STRENGTH : 5 MG / ML,
     Route: 042
     Dates: start: 20181023, end: 20181023

REACTIONS (4)
  - Off label use [Unknown]
  - Nausea [Recovering/Resolving]
  - Vertigo [Recovering/Resolving]
  - Vomiting [Recovering/Resolving]

NARRATIVE: CASE EVENT DATE: 20181024
